FAERS Safety Report 6737549-2 (Version None)
Quarter: 2010Q2

REPORT INFORMATION
  Report Type: 
  Country: None (occurrence: None)
  Receive Date: 20100521
  Receipt Date: 20100521
  Transmission Date: 20101027
  Serious: No
  Sender: FDA-Public Use
  Company Number: None

PATIENT
  Sex: Female

DRUGS (1)
  1. AMPYRA [Suspect]
     Dosage: 10MG BID PO
     Route: 048
     Dates: start: 20100506

REACTIONS (5)
  - MYALGIA [None]
  - NAUSEA [None]
  - PAIN [None]
  - PAIN IN JAW [None]
  - TRIGEMINAL NEURALGIA [None]
